FAERS Safety Report 6579882 (Version 29)
Quarter: 2013Q3

REPORT INFORMATION
  Report Type: Spontaneous
  Country: US (occurrence: US)
  Receive Date: 20080313
  Receipt Date: 20130813
  Transmission Date: 20140515
  Serious: Yes (Death, Other)
  Sender: FDA-Public Use
  Company Number: PHEH2008US02622

PATIENT
  Age: 56 Year
  Sex: Female
  Weight: 63.49 kg

DRUGS (47)
  1. AREDIA [Suspect]
     Indication: PLASMA CELL MYELOMA
     Dates: start: 199908
  2. ZOMETA [Suspect]
     Indication: PLASMA CELL MYELOMA
     Dates: start: 200308, end: 200411
  3. FOSAMAX [Suspect]
  4. THALIDOMIDE [Concomitant]
     Dates: start: 2001, end: 200302
  5. COUMADIN ^BOOTS^ [Concomitant]
  6. ACYCLOVIR [Concomitant]
     Dosage: 800 MG, BID
  7. OXYCONTIN [Concomitant]
     Dosage: 40 MG, BID
  8. FLEXERIL [Concomitant]
     Dosage: 10 MG,
  9. PERCOCET [Concomitant]
  10. OXYCODONE [Concomitant]
  11. AMOXICILLIN [Concomitant]
     Dosage: 500 MG, TID
  12. HYDROMORPHONE [Concomitant]
     Dosage: 4 MG, PRN
  13. VELCADE [Concomitant]
     Dates: start: 200708, end: 200710
  14. MELPHALAN [Concomitant]
  15. FLUCONAZOLE [Concomitant]
     Dosage: 200 MG, DAILY
  16. POTASSIUM [Concomitant]
     Dosage: 200 MEQ, QD
     Route: 048
  17. LUNESTA [Concomitant]
     Dosage: 2 MG, QD
     Route: 048
  18. LYRICA [Concomitant]
     Dosage: 150 MG, UNK
     Route: 048
  19. LEVAQUIN [Concomitant]
     Dosage: 500 MG, UNK
     Route: 048
  20. GABAPENTIN [Concomitant]
     Dosage: 300 MG, UNK
     Route: 048
  21. CHLORHEXIDINE DENTAL ^ACO^ [Concomitant]
     Route: 048
  22. LOVASTATIN [Concomitant]
     Dosage: 40 MG, UNK
     Route: 048
  23. PROCHLORPERAZINE [Concomitant]
     Dosage: 10 MG, UNK
     Route: 048
  24. LIDODERM [Concomitant]
     Route: 062
  25. DEXAMETHAZONE-PIX [Concomitant]
     Dosage: 4 MG, UNK
     Route: 048
  26. AZITHROMYCIN [Concomitant]
     Dosage: 250 MG, UNK
     Route: 048
  27. NEXIUM [Concomitant]
     Dosage: 40 MG, UNK
     Route: 048
  28. PENICILLIN VK [Concomitant]
     Dosage: 500 MG, UNK
     Route: 048
  29. NEURONTIN [Concomitant]
     Dosage: 300 MG, UNK
     Route: 048
  30. NEURONTIN [Concomitant]
     Dosage: 800 MG, UNK
     Route: 048
  31. CEPHALEXIN [Concomitant]
     Dosage: 500 MG, UNK
     Route: 048
  32. LISINOPRIL [Concomitant]
     Dosage: 5 MG, UNK
     Route: 048
  33. AMBIEN [Concomitant]
     Dosage: 5 MG, UNK
     Route: 048
  34. VIOXX [Concomitant]
     Dosage: 25 MG, UNK
     Route: 048
  35. METHOCARBAMOL [Concomitant]
     Dosage: 500 MG, UNK
     Route: 048
  36. CELEBREX [Concomitant]
     Dosage: 200 MG, UNK
     Route: 048
  37. AMITRIPTYLINE [Concomitant]
     Dosage: 50 MG, UNK
     Route: 048
  38. THALOMID [Concomitant]
     Dosage: 50 MG, UNK
     Route: 048
  39. FAMVIR                                  /NET/ [Concomitant]
     Dosage: 500 MG, UNK
     Route: 048
  40. INTERFERON [Concomitant]
     Dates: start: 199908
  41. FLUDARABINE [Concomitant]
  42. ZANTAC [Concomitant]
  43. REVLIMID [Concomitant]
  44. ACETYLSALICYLIC ACID [Concomitant]
  45. NORCO [Concomitant]
  46. VITAMIN B6 [Concomitant]
  47. LEVOTHYROXINE [Concomitant]

REACTIONS (163)
  - Death [Fatal]
  - Peripheral vascular disorder [Unknown]
  - Aortic arteriosclerosis [Unknown]
  - Osteomyelitis chronic [Unknown]
  - Foot fracture [Unknown]
  - Osteonecrosis of jaw [Unknown]
  - Purulence [Unknown]
  - Tooth loss [Unknown]
  - Infection [Unknown]
  - Pain in extremity [Unknown]
  - Pain [Unknown]
  - Deformity [Unknown]
  - Anxiety [Unknown]
  - Emotional distress [Unknown]
  - Leriche syndrome [Unknown]
  - Neuropathy peripheral [Unknown]
  - Osteopenia [Unknown]
  - Joint effusion [Unknown]
  - Eye pain [Unknown]
  - Monocytosis [Unknown]
  - Osteoporosis [Unknown]
  - Bone lesion [Unknown]
  - Malignant neoplasm progression [Unknown]
  - Plasmacytoma [Unknown]
  - Intervertebral disc disorder [Unknown]
  - Spinal fracture [Unknown]
  - Skull malformation [Unknown]
  - Pyelonephritis [Unknown]
  - Phlebitis [Unknown]
  - Hypoaesthesia [Unknown]
  - Paraesthesia [Unknown]
  - Constipation [Unknown]
  - Nervousness [Unknown]
  - Asthenia [Unknown]
  - Thirst [Unknown]
  - Decreased appetite [Unknown]
  - Bone pain [Unknown]
  - Bladder spasm [Unknown]
  - Wound dehiscence [Unknown]
  - Hip fracture [Unknown]
  - Dyspnoea [Unknown]
  - Mitral valve incompetence [Unknown]
  - Right ventricular systolic pressure increased [Unknown]
  - Ejection fraction decreased [Unknown]
  - Left ventricular hypertrophy [Unknown]
  - Cardiac aneurysm [Unknown]
  - Ventricular dyskinesia [Unknown]
  - Osteoarthritis [Unknown]
  - Fall [Unknown]
  - Carotid artery stenosis [Unknown]
  - Actinic keratosis [Unknown]
  - Gastritis [Unknown]
  - Dermal cyst [Unknown]
  - Peripheral artery thrombosis [Unknown]
  - Abdominal tenderness [Unknown]
  - Hepatic lesion [Unknown]
  - Epidermal naevus [Unknown]
  - Metastases to liver [Unknown]
  - Seroma [Unknown]
  - Paraparesis [Unknown]
  - Pericardial effusion [Unknown]
  - Chest pain [Unknown]
  - Hepatic mass [Unknown]
  - Renal failure chronic [Unknown]
  - Anaemia of chronic disease [Unknown]
  - Tricuspid valve incompetence [Unknown]
  - Pulmonary hypertension [Unknown]
  - Cardiomegaly [Unknown]
  - Atelectasis [Unknown]
  - Rib fracture [Unknown]
  - Pneumonia [Unknown]
  - Pleural effusion [Unknown]
  - Cardiac failure congestive [Unknown]
  - Fluid overload [Unknown]
  - Breast tenderness [Unknown]
  - Visual acuity reduced [Unknown]
  - Hyperlipidaemia [Unknown]
  - Vision blurred [Unknown]
  - Dysuria [Unknown]
  - Osteolysis [Unknown]
  - Hepatic steatosis [Unknown]
  - Exostosis [Unknown]
  - Aortic calcification [Unknown]
  - Haematemesis [Unknown]
  - Pyrexia [Unknown]
  - Pollakiuria [Unknown]
  - Lymphadenopathy [Unknown]
  - Bone erosion [Unknown]
  - Bone swelling [Unknown]
  - Exposed bone in jaw [Unknown]
  - Lung disorder [Unknown]
  - Pleural fibrosis [Unknown]
  - Arteriosclerosis [Unknown]
  - Spinal osteoarthritis [Unknown]
  - Cervical spinal stenosis [Unknown]
  - Upper respiratory tract infection [Unknown]
  - Sinusitis [Unknown]
  - Venoocclusive disease [Unknown]
  - Mucosal inflammation [Unknown]
  - Chronic obstructive pulmonary disease [Unknown]
  - Kyphosis [Unknown]
  - Abdominal pain [Unknown]
  - Cholelithiasis [Unknown]
  - Back pain [Unknown]
  - Intervertebral disc degeneration [Unknown]
  - Perineurial cyst [Unknown]
  - Osteosclerosis [Unknown]
  - Vertebral foraminal stenosis [Unknown]
  - Bronchial wall thickening [Unknown]
  - Pulmonary oedema [Unknown]
  - Fluid retention [Unknown]
  - Angiopathy [Unknown]
  - Renal failure acute [Unknown]
  - Lung infiltration [Recovered/Resolved]
  - Emphysema [Unknown]
  - Epistaxis [Unknown]
  - Gingival ulceration [Unknown]
  - Skin mass [Unknown]
  - Intervertebral disc protrusion [Unknown]
  - Osteochondrosis [Unknown]
  - Oropharyngeal pain [Unknown]
  - Depression [Unknown]
  - Bone marrow failure [Unknown]
  - Hepatic failure [Unknown]
  - Insomnia [Unknown]
  - Pancytopenia [Unknown]
  - Wound [Unknown]
  - Psychomotor skills impaired [Unknown]
  - Thrombocytopenia [Unknown]
  - Breath sounds abnormal [Unknown]
  - Swelling [Unknown]
  - Petechiae [Unknown]
  - Ecchymosis [Unknown]
  - Subcutaneous haematoma [Unknown]
  - Erythema [Unknown]
  - Decubitus ulcer [Unknown]
  - Mobility decreased [Unknown]
  - Anuria [Unknown]
  - Oral pain [Unknown]
  - Dry mouth [Unknown]
  - Cognitive disorder [Unknown]
  - Confusional state [Unknown]
  - Haematochezia [Unknown]
  - Incontinence [Unknown]
  - Abnormal faeces [Unknown]
  - Mouth haemorrhage [Unknown]
  - Cough [Unknown]
  - Tremor [Unknown]
  - Unresponsive to stimuli [Unknown]
  - Functional gastrointestinal disorder [Unknown]
  - Apnoea [Unknown]
  - Atrophy [Unknown]
  - Crepitations [Unknown]
  - Oedema peripheral [Unknown]
  - Hypovolaemia [Unknown]
  - Sinus tachycardia [Unknown]
  - Hyperparathyroidism [Unknown]
  - Leukopenia [Unknown]
  - Vitreous floaters [Unknown]
  - Dry eye [Unknown]
  - Presbyopia [Unknown]
  - Dehydration [Unknown]
  - Memory impairment [Unknown]
